FAERS Safety Report 7423020-1 (Version None)
Quarter: 2011Q2

REPORT INFORMATION
  Report Type: 
  Country: None (occurrence: None)
  Receive Date: 20110419
  Receipt Date: 20110414
  Transmission Date: 20111010
  Serious: Yes (Hospitalization, Other)
  Sender: FDA-Public Use
  Company Number: US-PFIZER INC-2011082977

PATIENT

DRUGS (2)
  1. DILANTIN [Suspect]
     Dosage: 100 MG, UNK
  2. DILANTIN-125 [Suspect]
     Dosage: UNK

REACTIONS (2)
  - DRUG LEVEL ABOVE THERAPEUTIC [None]
  - DRUG LEVEL DECREASED [None]
